FAERS Safety Report 23063484 (Version 1)
Quarter: 2023Q4

REPORT INFORMATION
  Report Type: Spontaneous
  Country: US (occurrence: US)
  Receive Date: 20231013
  Receipt Date: 20231013
  Transmission Date: 20240109
  Serious: No
  Sender: FDA-Public Use
  Company Number: US-ADAREPHARM-2023-US-000002

PATIENT
  Age: 82 Year
  Sex: Male

DRUGS (1)
  1. KCL [Suspect]
     Active Substance: POTASSIUM CHLORIDE
     Indication: Prophylaxis
     Route: 048

REACTIONS (2)
  - Product use complaint [Recovered/Resolved]
  - Product physical consistency issue [Recovered/Resolved]
